FAERS Safety Report 7012643-X (Version None)
Quarter: 2010Q3

REPORT INFORMATION
  Report Type: 
  Country: None (occurrence: None)
  Receive Date: 20100924
  Receipt Date: 20100910
  Transmission Date: 20110219
  Serious: Yes (Hospitalization)
  Sender: FDA-Public Use
  Company Number: US-ROCHE-716864

PATIENT
  Age: 52 Year
  Sex: Male
  Weight: 113.1 kg

DRUGS (5)
  1. BEVACIZUMAB [Suspect]
     Dosage: LAST TREATMENT ON 6 JUNE 2010. DOSE 15 MG/KG, FREQUENCY REPORTED DAY 1.
     Route: 065
  2. CETUXIMAB [Suspect]
     Dosage: LAST TREATMENT ON 6 JUNE 2010, DOSE 250 MG/M2 FREQUENCY DAY 1.
     Route: 065
  3. CISPLATIN [Suspect]
     Route: 065
  4. OXYCODONE [Concomitant]
     Dosage: FREQUENCY: Q4
     Route: 048
  5. REGLAN [Concomitant]
     Dosage: FREQUENCY: BO
     Route: 048

REACTIONS (7)
  - DEHYDRATION [None]
  - FAILURE TO THRIVE [None]
  - NAUSEA [None]
  - SYNCOPE [None]
  - THROMBOSIS [None]
  - URINE ELECTROLYTES DECREASED [None]
  - WEIGHT DECREASED [None]
